FAERS Safety Report 9829846 (Version 7)
Quarter: 2015Q4

REPORT INFORMATION
  Report Type: Report from Study
  Country: GB (occurrence: GB)
  Receive Date: 20140120
  Receipt Date: 20151203
  Transmission Date: 20160305
  Serious: Yes (Death, Hospitalization, Other)
  Sender: FDA-Public Use
  Company Number: GB-ROCHE-1335392

PATIENT
  Age: 92 Year
  Sex: Female
  Weight: 45 kg

DRUGS (6)
  1. AMLODIPINE [Concomitant]
     Active Substance: AMLODIPINE BESYLATE
     Route: 065
     Dates: start: 20140224
  2. ATORVASTATIN [Concomitant]
     Active Substance: ATORVASTATIN
     Route: 065
     Dates: start: 20140309
  3. RANIBIZUMAB [Suspect]
     Active Substance: RANIBIZUMAB
     Route: 050
     Dates: start: 20130828
  4. RANIBIZUMAB [Suspect]
     Active Substance: RANIBIZUMAB
     Route: 050
     Dates: start: 20120917
  5. CLOPIDOGREL [Concomitant]
     Active Substance: CLOPIDOGREL BISULFATE
     Route: 065
     Dates: start: 20140309
  6. RANIBIZUMAB [Suspect]
     Active Substance: RANIBIZUMAB
     Indication: NEOVASCULAR AGE-RELATED MACULAR DEGENERATION
     Dosage: PRN: AS NEEDED
     Route: 050
     Dates: start: 20100731

REACTIONS (7)
  - Retinal artery occlusion [Not Recovered/Not Resolved]
  - Aortic aneurysm [Unknown]
  - Fall [Unknown]
  - Retinal artery occlusion [Not Recovered/Not Resolved]
  - Aortic aneurysm rupture [Fatal]
  - Femoral neck fracture [Fatal]
  - Atrial fibrillation [Unknown]

NARRATIVE: CASE EVENT DATE: 20131215
